FAERS Safety Report 11690278 (Version 1)
Quarter: 2015Q4

REPORT INFORMATION
  Report Type: Other
  Country: IT (occurrence: IT)
  Receive Date: 20151102
  Receipt Date: 20151102
  Transmission Date: 20160304
  Serious: Yes (Other)
  Sender: FDA-Public Use
  Company Number: IT-MYLANLABS-2015M1036362

PATIENT

DRUGS (2)
  1. TRIMEBUTINE MALEATE [Suspect]
     Active Substance: TRIMEBUTINE MALEATE
     Indication: MOOD ALTERED
     Dosage: 10 DF DAILY
     Route: 048
     Dates: start: 20141104, end: 20141104
  2. CIPROFLOXACINA [Suspect]
     Active Substance: CIPROFLOXACIN
     Indication: MOOD ALTERED
     Dosage: 9 DF DAILY
     Route: 048
     Dates: start: 20141104, end: 20141104

REACTIONS (2)
  - Vomiting [Recovering/Resolving]
  - Drug abuse [Recovering/Resolving]

NARRATIVE: CASE EVENT DATE: 20141104
